FAERS Safety Report 26098020 (Version 1)
Quarter: 2025Q4

REPORT INFORMATION
  Report Type: Spontaneous
  Country: EU (occurrence: EU)
  Receive Date: 20251127
  Receipt Date: 20251127
  Transmission Date: 20260118
  Serious: Yes (Hospitalization)
  Sender: B. BRAUN MEDICAL INC.
  Company Number: EU-B. Braun Medical Inc.-DE-BBM-202504561

PATIENT
  Age: 11 Year
  Sex: Male

DRUGS (1)
  1. LEVETIRACETAM [Suspect]
     Active Substance: LEVETIRACETAM
     Indication: Seizure
     Dosage: ON DAY 3 OF HOSPITALIZATION, AN INTRAVENOUS LOADING DOSE OF 30 MG/KG WAS ADMINISTERED OVER 30 MINUTES. ON DAY 4, APPROXIMATELY 12 HOURS AFTER THE LOADING DOSE, THE PATIENT RECEIVED THE FIRST INTRAVENOUS MAINTENANCE DOSE OF 10 MG/KG OVER 30?MINUTES AS WELL. THE PLANNED ONGOING TREATMENT REGIMEN WAS 2

REACTIONS (1)
  - Metabolic acidosis [Recovered/Resolved]
